FAERS Safety Report 6934617-7 (Version None)
Quarter: 2010Q3

REPORT INFORMATION
  Report Type: 
  Country: None (occurrence: None)
  Receive Date: 20100820
  Receipt Date: 20100806
  Transmission Date: 20110219
  Serious: Yes (Hospitalization)
  Sender: FDA-Public Use
  Company Number: BR-US-EMD SERONO, INC.-7013927

PATIENT
  Sex: Female

DRUGS (6)
  1. REBIF [Suspect]
     Indication: RELAPSING-REMITTING MULTIPLE SCLEROSIS
     Route: 058
     Dates: start: 20081003
  2. HIDRION [Concomitant]
  3. OMEPRAZOLE [Concomitant]
  4. PAROXETINE HCL [Concomitant]
  5. PROPRANOLOL [Concomitant]
  6. RIVOTRIL [Concomitant]

REACTIONS (1)
  - HYPERTENSIVE CRISIS [None]
